FAERS Safety Report 15486161 (Version 1)
Quarter: 2018Q4

REPORT INFORMATION
  Report Type: Spontaneous
  Country: CA (occurrence: CA)
  Receive Date: 20181011
  Receipt Date: 20181011
  Transmission Date: 20190205
  Serious: Yes (Life-Threatening, Other)
  Sender: FDA-Public Use
  Company Number: CA-BEH-2018095485

PATIENT
  Age: 35 Year
  Sex: Female

DRUGS (7)
  1. RIASTAP [Suspect]
     Active Substance: FIBRINOGEN HUMAN
     Indication: POSTPARTUM HAEMORRHAGE
     Dosage: 4 G (4 X 1G), SINGLE
     Route: 042
     Dates: start: 20180906, end: 20180906
  2. FIBRINOGEN [Concomitant]
     Active Substance: FIBRINOGEN HUMAN
  3. ANCEF [Concomitant]
     Active Substance: CEFAZOLIN SODIUM
  4. TRANEXAMIC ACID. [Concomitant]
     Active Substance: TRANEXAMIC ACID
  5. MISOPROSTOL. [Concomitant]
     Active Substance: MISOPROSTOL
  6. ORGOTEIN [Concomitant]
     Active Substance: ORGOTEIN
  7. HEMABATE [Concomitant]
     Active Substance: CARBOPROST TROMETHAMINE

REACTIONS (5)
  - Pulmonary embolism [Recovered/Resolved]
  - Shock [Recovered/Resolved]
  - Cardiac arrest [Recovered/Resolved]
  - Urticaria [Recovered/Resolved]
  - Anaphylactic reaction [Recovered/Resolved]

NARRATIVE: CASE EVENT DATE: 20180906
